FAERS Safety Report 13312441 (Version 1)
Quarter: 2017Q1

REPORT INFORMATION
  Report Type: Spontaneous
  Country: US (occurrence: US)
  Receive Date: 20170309
  Receipt Date: 20170309
  Transmission Date: 20170428
  Serious: No
  Sender: FDA-Public Use
  Company Number: None

PATIENT
  Age: 43 Year
  Sex: Female
  Weight: 75.36 kg

DRUGS (5)
  1. IMITRIX [Concomitant]
  2. MULTIVITAMIN [Concomitant]
     Active Substance: VITAMINS
  3. AMBIEN [Concomitant]
     Active Substance: ZOLPIDEM TARTRATE
  4. BIOTIN [Concomitant]
     Active Substance: BIOTIN
  5. LILETTA [Suspect]
     Active Substance: LEVONORGESTREL

REACTIONS (4)
  - Pain [None]
  - Abdominal pain [None]
  - Menorrhagia [None]
  - Device dislocation [None]

NARRATIVE: CASE EVENT DATE: 20170213
